FAERS Safety Report 8586271-9 (Version None)
Quarter: 2012Q3

REPORT INFORMATION
  Report Type: 
  Country: None (occurrence: None)
  Receive Date: 20120810
  Receipt Date: 20120803
  Transmission Date: 20120928
  Serious: Yes (Death, Hospitalization, Other)
  Sender: FDA-Public Use
  Company Number: US-TEVA-347110USA

PATIENT
  Sex: Male

DRUGS (11)
  1. METFORMIN HYDROCHLORIDE [Concomitant]
  2. IBUPROFEN [Concomitant]
  3. PRILOSEC [Concomitant]
  4. SIMVASTATIN [Concomitant]
  5. SERTRALINE HYDROCHLORIDE [Concomitant]
     Dosage: 100 MILLIGRAM DAILY;
  6. DEPAKOTE [Concomitant]
     Dosage: 4000 MILLIGRAM DAILY;
  7. FLUTICASONE PROPIONATE [Concomitant]
     Route: 055
  8. TRAZODONE HYDROCHLORIDE [Concomitant]
     Dosage: 600 MILLIGRAM DAILY;
  9. ALBUTEROL [Concomitant]
     Route: 055
  10. CLOZAPINE [Suspect]
     Indication: SCHIZOPHRENIA, PARANOID TYPE
     Dosage: 450 MILLIGRAM DAILY;
     Route: 048
  11. NICOTINE [Concomitant]
     Dosage: PATCHES AND LOZENGES

REACTIONS (4)
  - FALL [None]
  - DRUG DOSE OMISSION [None]
  - CEREBROVASCULAR ACCIDENT [None]
  - MYOCARDIAL INFARCTION [None]
